FAERS Safety Report 6421338-2 (Version None)
Quarter: 2009Q4

REPORT INFORMATION
  Report Type: 
  Country: None (occurrence: None)
  Receive Date: 20091030
  Receipt Date: 20071018
  Transmission Date: 20100525
  Serious: Yes (Hospitalization)
  Sender: FDA-Public Use
  Company Number: GB-JNJFOC-20060103271

PATIENT
  Sex: Male

DRUGS (1)
  1. INFLIXIMAB, RECOMBINANT [Suspect]
     Indication: SCIATICA
     Route: 042
     Dates: start: 20051220

REACTIONS (2)
  - CONDITION AGGRAVATED [None]
  - SCIATICA [None]
